FAERS Safety Report 5735870-8 (Version None)
Quarter: 2008Q2

REPORT INFORMATION
  Report Type: 
  Country: None (occurrence: None)
  Receive Date: 20080513
  Receipt Date: 20080502
  Transmission Date: 20081010
  Serious: Yes (Other)
  Sender: FDA-Public Use
  Company Number: US-ELI_LILLY_AND_COMPANY-US200805000820

PATIENT
  Sex: Male

DRUGS (3)
  1. ALIMTA [Suspect]
     Indication: PLEURAL MESOTHELIOMA MALIGNANT
     Dosage: 500 MG, UNK
     Route: 042
     Dates: start: 20070212
  2. ALIMTA [Suspect]
     Dosage: 425 MG/M2, UNK
     Dates: end: 20080502
  3. CARBOPLATIN [Concomitant]
     Indication: PLEURAL MESOTHELIOMA MALIGNANT
     Dates: start: 20070212

REACTIONS (2)
  - BONE MARROW FAILURE [None]
  - UNRESPONSIVE TO STIMULI [None]
